FAERS Safety Report 21686925 (Version 2)
Quarter: 2022Q4

REPORT INFORMATION
  Report Type: Report from Study
  Country: DE (occurrence: None)
  Receive Date: 20221206
  Receipt Date: 20221216
  Transmission Date: 20230113
  Serious: Yes (Death, Life-Threatening, Hospitalization)
  Sender: FDA-Public Use
  Company Number: DE-ROCHE-3216065

PATIENT
  Age: 40 Year
  Sex: Female
  Weight: 76 kg

DRUGS (16)
  1. OBINUTUZUMAB [Suspect]
     Active Substance: OBINUTUZUMAB
     Indication: Follicular lymphoma
     Dosage: DATE OF MOST RECENT DOSE OF OBINUTUZUMAB PRIOR TO AE ONSET ON 25/OCT/2022
     Route: 041
     Dates: start: 20220411
  2. COPANLISIB [Suspect]
     Active Substance: COPANLISIB
     Indication: Follicular lymphoma
     Dosage: DATE OF MOST RECENT DOSE OF COPANLISIB PRIOR TO AE ONSET: 14/SEP/2022
     Route: 041
     Dates: start: 20220411, end: 20220914
  3. HEPARIN [Concomitant]
     Active Substance: HEPARIN SODIUM
     Indication: Factor V deficiency
     Dates: start: 20160101
  4. FENOTEROL HYDROBROMIDE\IPRATROPIUM BROMIDE [Concomitant]
     Active Substance: FENOTEROL HYDROBROMIDE\IPRATROPIUM BROMIDE
     Indication: Dyspnoea
     Dates: start: 20220914
  5. METHYLPREDNISOLONE [Concomitant]
     Active Substance: METHYLPREDNISOLONE
     Dates: start: 20220922
  6. SULFAMETHOXAZOLE\TRIMETHOPRIM [Concomitant]
     Active Substance: SULFAMETHOXAZOLE\TRIMETHOPRIM
     Dates: start: 20221111
  7. MEROPENEM [Concomitant]
     Active Substance: MEROPENEM
     Dates: start: 20221118
  8. PANTOPRAZOLE [Concomitant]
     Active Substance: PANTOPRAZOLE
     Dates: start: 20220926
  9. ENOXAPARIN [Concomitant]
     Active Substance: ENOXAPARIN
     Dates: start: 20221107
  10. ALBUTEROL SULFATE\IPRATROPIUM BROMIDE [Concomitant]
     Active Substance: ALBUTEROL SULFATE\IPRATROPIUM BROMIDE
     Indication: Pneumonitis
     Dates: start: 20221107
  11. BRICANYL [Concomitant]
     Active Substance: TERBUTALINE SULFATE
     Indication: Pneumonitis
     Dates: start: 20221111
  12. TAVOR (LORAZEPAM) [Concomitant]
     Active Substance: LORAZEPAM
     Indication: Pneumonitis
     Dates: start: 20221115
  13. PREDNISOLONE [Concomitant]
     Active Substance: PREDNISOLONE
     Indication: Pneumonitis
     Dates: start: 20221118
  14. MORPHINE [Concomitant]
     Active Substance: MORPHINE
     Dates: start: 20221111
  15. MOVICOL [Concomitant]
     Active Substance: POLYETHYLENE GLYCOL 3350\POTASSIUM CHLORIDE\SODIUM BICARBONATE\SODIUM CHLORIDE
     Dates: start: 20220426
  16. ACYCLOVIR [Concomitant]
     Active Substance: ACYCLOVIR

REACTIONS (2)
  - Pneumonitis [Not Recovered/Not Resolved]
  - Pneumocystis jirovecii pneumonia [Fatal]

NARRATIVE: CASE EVENT DATE: 20220921
